FAERS Safety Report 24037893 (Version 1)
Quarter: 2024Q3

REPORT INFORMATION
  Report Type: Report from Study
  Country: US (occurrence: US)
  Receive Date: 20240702
  Receipt Date: 20240702
  Transmission Date: 20241016
  Serious: No
  Sender: RANBAXY
  Company Number: US-SUN PHARMACEUTICAL INDUSTRIES LTD-2022R1-328345

PATIENT

DRUGS (1)
  1. ISOTRETINOIN [Suspect]
     Active Substance: ISOTRETINOIN
     Indication: Product used for unknown indication
     Route: 065

REACTIONS (12)
  - Rash [Unknown]
  - Urticaria [Unknown]
  - Dry eye [Unknown]
  - Ocular hyperaemia [Unknown]
  - Chapped lips [Unknown]
  - Lip dry [Unknown]
  - Dry skin [Unknown]
  - Alopecia [Unknown]
  - Decreased appetite [Unknown]
  - Nausea [Unknown]
  - Headache [Unknown]
  - Myalgia [Unknown]
